FAERS Safety Report 13559779 (Version 1)
Quarter: 2017Q2

REPORT INFORMATION
  Report Type: Spontaneous
  Country: ES (occurrence: ES)
  Receive Date: 20170518
  Receipt Date: 20170518
  Transmission Date: 20170830
  Serious: Yes (Other)
  Sender: FDA-Public Use
  Company Number: ES-ROCHE-1934262

PATIENT
  Age: 41 Year
  Sex: Male

DRUGS (2)
  1. ZELBORAF [Concomitant]
     Active Substance: VEMURAFENIB
     Indication: METASTATIC MALIGNANT MELANOMA
     Route: 048
     Dates: start: 20170328
  2. COTELLIC [Suspect]
     Active Substance: COBIMETINIB
     Indication: METASTATIC MALIGNANT MELANOMA
     Route: 048
     Dates: start: 20170328, end: 20170427

REACTIONS (5)
  - Stomatitis [Recovering/Resolving]
  - Chorioretinopathy [Recovering/Resolving]
  - Acne [Recovering/Resolving]
  - Face oedema [Recovering/Resolving]
  - Constipation [Recovering/Resolving]

NARRATIVE: CASE EVENT DATE: 20170415
